FAERS Safety Report 11677695 (Version 1)
Quarter: 2015Q4

REPORT INFORMATION
  Report Type: Spontaneous
  Country: US (occurrence: US)
  Receive Date: 20151028
  Receipt Date: 20151028
  Transmission Date: 20160304
  Serious: No
  Sender: FDA-Public Use
  Company Number: US-MYLANLABS-2015M1022712

PATIENT
  Sex: Female

DRUGS (3)
  1. CARVEDILOL TABLETS, USP [Suspect]
     Active Substance: CARVEDILOL
     Indication: BLOOD PRESSURE MEASUREMENT
     Dosage: 3.125 MG, BID
     Route: 048
     Dates: start: 201505
  2. VERAPAMIL HYDROCHLORIDE TABLETS, USP [Suspect]
     Active Substance: VERAPAMIL HYDROCHLORIDE
     Indication: HEART RATE
     Dosage: 80 MG, BID
     Route: 048
     Dates: start: 20150527
  3. SYNTHROID [Concomitant]
     Active Substance: LEVOTHYROXINE SODIUM
     Indication: HYPOTHYROIDISM
     Dosage: UNK

REACTIONS (5)
  - Pruritus [Not Recovered/Not Resolved]
  - Joint swelling [Not Recovered/Not Resolved]
  - Peripheral swelling [Not Recovered/Not Resolved]
  - Dyspnoea [Not Recovered/Not Resolved]
  - Urticaria [Not Recovered/Not Resolved]

NARRATIVE: CASE EVENT DATE: 201505
